FAERS Safety Report 18707009 (Version 1)
Quarter: 2021Q1

REPORT INFORMATION
  Report Type: Spontaneous
  Country: US (occurrence: US)
  Receive Date: 20210106
  Receipt Date: 20210106
  Transmission Date: 20210419
  Serious: Yes (Other)
  Sender: FDA-Public Use
  Company Number: None

PATIENT
  Age: 67 Year
  Sex: Male
  Weight: 92.25 kg

DRUGS (2)
  1. SODIUM CHLORIDE 0.9% (NS) 250 ML [Concomitant]
     Dates: start: 20210105, end: 20210105
  2. BAMLANIVIMAB. [Suspect]
     Active Substance: BAMLANIVIMAB
     Indication: CORONAVIRUS INFECTION
     Dosage: ?          OTHER FREQUENCY:ONCE;?
     Route: 042
     Dates: start: 20210105, end: 20210105

REACTIONS (8)
  - Pyrexia [None]
  - Oxygen saturation decreased [None]
  - Mental status changes [None]
  - Dyspnoea [None]
  - Vomiting [None]
  - Pneumonia [None]
  - Confusional state [None]
  - Nausea [None]

NARRATIVE: CASE EVENT DATE: 20210105
